FAERS Safety Report 24954106 (Version 1)
Quarter: 2025Q1

REPORT INFORMATION
  Report Type: Spontaneous
  Country: IT (occurrence: IT)
  Receive Date: 20250211
  Receipt Date: 20250211
  Transmission Date: 20250409
  Serious: Yes (Death, Other)
  Sender: RANBAXY
  Company Number: IT-SUN PHARMACEUTICAL INDUSTRIES LTD-2025RR-493521

PATIENT
  Age: 72 Year
  Sex: Female

DRUGS (10)
  1. PREGABALIN [Suspect]
     Active Substance: PREGABALIN
     Indication: Abdominal pain upper
     Dosage: 75 MILLIGRAM, DAILY
     Route: 065
  2. MORPHINE [Suspect]
     Active Substance: MORPHINE
     Indication: Abdominal pain upper
     Dosage: 80 MILLIGRAM, DAILY24-HOUR CONTINUOUS
     Route: 041
  3. MORPHINE [Suspect]
     Active Substance: MORPHINE
     Route: 042
  4. DEXAMETHASONE [Suspect]
     Active Substance: DEXAMETHASONE
     Indication: Abdominal pain upper
     Dosage: 4 MILLIGRAM, BID
     Route: 040
  5. ACETAMINOPHEN [Suspect]
     Active Substance: ACETAMINOPHEN
     Indication: Abdominal pain upper
     Route: 065
  6. OXALIPLATIN [Suspect]
     Active Substance: OXALIPLATIN
     Indication: Squamous cell carcinoma
     Route: 065
  7. LEUCOVORIN CALCIUM [Suspect]
     Active Substance: LEUCOVORIN CALCIUM
     Indication: Squamous cell carcinoma
     Route: 065
  8. FLUOROURACIL [Suspect]
     Active Substance: FLUOROURACIL
     Indication: Squamous cell carcinoma
     Dosage: 400 MILLIGRAM/SQ. METER, DAILY ON DAY 1
     Route: 040
  9. FLUOROURACIL [Suspect]
     Active Substance: FLUOROURACIL
     Route: 065
  10. MIDAZOLAM [Suspect]
     Active Substance: MIDAZOLAM
     Indication: Abdominal pain upper
     Route: 065

REACTIONS (4)
  - Condition aggravated [Fatal]
  - Confusional state [Not Recovered/Not Resolved]
  - Delirium [Not Recovered/Not Resolved]
  - Drug ineffective [Not Recovered/Not Resolved]
